FAERS Safety Report 14197996 (Version 1)
Quarter: 2017Q4

REPORT INFORMATION
  Report Type: Spontaneous
  Country: US (occurrence: US)
  Receive Date: 20171117
  Receipt Date: 20171117
  Transmission Date: 20180321
  Serious: No
  Sender: FDA-Public Use
  Company Number: US-SHIRE-US201720840

PATIENT
  Sex: Female

DRUGS (2)
  1. GAMMAGARD LIQUID [Suspect]
     Active Substance: HUMAN IMMUNOGLOBULIN G
     Indication: SELECTIVE IGG SUBCLASS DEFICIENCY
     Dosage: 30 GRAMS FOR THE FIRST INFUSION, THEN 15 GRAMS EVERY TWO WEEKS THERE AFTER
     Route: 065
  2. CYMBALTA [Concomitant]
     Active Substance: DULOXETINE HYDROCHLORIDE
     Indication: PRODUCT USED FOR UNKNOWN INDICATION

REACTIONS (6)
  - Muscle spasms [Unknown]
  - Musculoskeletal stiffness [Unknown]
  - Vomiting [Unknown]
  - Headache [Unknown]
  - Pyrexia [Unknown]
  - Fatigue [Unknown]
